FAERS Safety Report 15612430 (Version 1)
Quarter: 2018Q4

REPORT INFORMATION
  Report Type: Spontaneous
  Country: US (occurrence: US)
  Receive Date: 20181107
  Receipt Date: 20181107
  Transmission Date: 20190205
  Serious: Yes (Hospitalization)
  Sender: FDA-Public Use
  Company Number: None

PATIENT
  Age: 73 Year
  Sex: Male
  Weight: 86.8 kg

DRUGS (4)
  1. BENDAMUSTINE HYDROCHLORIDE. [Suspect]
     Active Substance: BENDAMUSTINE HYDROCHLORIDE
     Dates: end: 20150827
  2. LENALIDOMIDE (CC-5013) [Suspect]
     Active Substance: LENALIDOMIDE
     Dates: end: 20170401
  3. RITUXIMAB (MOABC2B8 ANTI CD20, CHIMERID) [Suspect]
     Active Substance: RITUXIMAB
     Dates: end: 20170316
  4. VELCADE [Suspect]
     Active Substance: BORTEZOMIB
     Dates: end: 20150827

REACTIONS (4)
  - Vomiting projectile [None]
  - Diarrhoea [None]
  - Pyrexia [None]
  - Nausea [None]

NARRATIVE: CASE EVENT DATE: 20170416
